FAERS Safety Report 5643382-5 (Version None)
Quarter: 2008Q1

REPORT INFORMATION
  Report Type: 
  Country: None (occurrence: None)
  Receive Date: 20080226
  Receipt Date: 20080215
  Transmission Date: 20080703
  Serious: Yes (Other)
  Sender: FDA-Public Use
  Company Number: 100#01#2008-00897

PATIENT
  Age: 20 Year
  Sex: Female

DRUGS (3)
  1. FLUMYCON (FLUCONAZOLE) [Suspect]
     Indication: BLASTOMYCOSIS
     Dosage: 100 MG ORAL
     Route: 048
  2. GYNALGIN (METRONIDAZOLE, CHLORQUINALDOL) [Suspect]
     Indication: BLASTOMYCOSIS
     Dosage: 250 MG + 100 MG VAGINAL
     Route: 067
  3. CLOTRIMAZOLUM (CREAM) (CLOTRIMAZOLE) [Suspect]
     Indication: BLASTOMYCOSIS
     Dosage: 10 MG/G TOPICAL
     Route: 061

REACTIONS (4)
  - ANXIETY [None]
  - RASH [None]
  - TACHYCARDIA [None]
  - TREMOR [None]
